FAERS Safety Report 8615567-7 (Version None)
Quarter: 2012Q3

REPORT INFORMATION
  Report Type: 
  Country: None (occurrence: None)
  Receive Date: 20120823
  Receipt Date: 20120822
  Transmission Date: 20120928
  Serious: Yes (Death)
  Sender: FDA-Public Use
  Company Number: PHFR2012GB002856

PATIENT
  Sex: Male

DRUGS (9)
  1. SULPIRIDE [Concomitant]
     Indication: SCHIZOPHRENIA
     Dosage: 1000 MG, UNK
     Route: 048
     Dates: start: 20070806
  2. INSULIN [Concomitant]
  3. METFORMIN [Concomitant]
  4. CLOZARIL [Suspect]
     Indication: SCHIZOPHRENIA
     Dosage: 500 MG, UNK
     Route: 048
     Dates: start: 20070520
  5. AMLODIPINE [Concomitant]
  6. RAMIPRIL [Concomitant]
  7. HYOSCINE HYDROBROMIDE [Concomitant]
     Indication: SALIVARY HYPERSECRETION
     Dosage: 300 UG, UNK
     Route: 048
  8. DEPAKOTE [Concomitant]
     Indication: SCHIZOPHRENIA
     Dosage: 2250 MG, UNK
     Route: 048
     Dates: start: 20070101
  9. TRIHEXYPHENIDYL HCL [Concomitant]
     Indication: EXTRAPYRAMIDAL DISORDER
     Dosage: 3 MG, UNK
     Dates: start: 20070101

REACTIONS (5)
  - TOXICITY TO VARIOUS AGENTS [None]
  - LUNG DISORDER [None]
  - SUDDEN DEATH [None]
  - MYOCARDIAL ISCHAEMIA [None]
  - HAEMOGLOBIN DECREASED [None]
